FAERS Safety Report 5749661-5 (Version None)
Quarter: 2008Q2

REPORT INFORMATION
  Report Type: 
  Country: None (occurrence: None)
  Receive Date: 20080527
  Receipt Date: 20080513
  Transmission Date: 20081010
  Serious: Yes (Other)
  Sender: FDA-Public Use
  Company Number: US-MERCK-0805USA02914

PATIENT
  Sex: Female

DRUGS (2)
  1. SINGULAIR [Suspect]
     Indication: PROPHYLAXIS
     Route: 048
     Dates: start: 20070901, end: 20080327
  2. SINGULAIR [Suspect]
     Route: 048
     Dates: start: 20070101, end: 20070101

REACTIONS (7)
  - ABNORMAL BEHAVIOUR [None]
  - ANXIETY [None]
  - DEPRESSION [None]
  - DISSOCIATION [None]
  - HYPERPHAGIA [None]
  - SELF ESTEEM DECREASED [None]
  - SUICIDAL IDEATION [None]
